FAERS Safety Report 4977103-6 (Version None)
Quarter: 2006Q2

REPORT INFORMATION
  Report Type: 
  Country: None (occurrence: None)
  Receive Date: 20060412
  Receipt Date: 20060404
  Transmission Date: 20061013
  Serious: Yes (Hospitalization, Other)
  Sender: FDA-Public Use
  Company Number: HQWYE074101MAR06

PATIENT
  Age: 24 Year
  Sex: Male
  Weight: 88.5 kg

DRUGS (4)
  1. RAPAMUNE [Suspect]
     Indication: PROPHYLAXIS AGAINST TRANSPLANT REJECTION
     Dosage: 10 MG 1X PER 1 DAY, ORAL  :  12 MG 1X PER 1 DAY, ORAL
     Route: 048
     Dates: start: 20060222, end: 20060227
  2. RAPAMUNE [Suspect]
     Indication: PROPHYLAXIS AGAINST TRANSPLANT REJECTION
     Dosage: 10 MG 1X PER 1 DAY, ORAL  :  12 MG 1X PER 1 DAY, ORAL
     Route: 048
     Dates: start: 20060228
  3. MYCOPHENOLATE MOFETIL [Suspect]
     Indication: PROPHYLAXIS AGAINST TRANSPLANT REJECTION
     Dosage: AT DISCHARGE 30 MG DAILY ; 1000 MG TWICE DAILY
  4. PREDNISONE TAB [Suspect]
     Indication: PROPHYLAXIS AGAINST TRANSPLANT REJECTION
     Dosage: AT DISCHARGE 30 MG DAILY

REACTIONS (5)
  - DIALYSIS [None]
  - FLUID OVERLOAD [None]
  - HYPERTENSION [None]
  - IMMUNOSUPPRESSANT DRUG LEVEL DECREASED [None]
  - RENAL TUBULAR NECROSIS [None]
